FAERS Safety Report 13130640 (Version 1)
Quarter: 2017Q1

REPORT INFORMATION
  Report Type: Report from Study
  Country: BR (occurrence: BR)
  Receive Date: 20170119
  Receipt Date: 20170119
  Transmission Date: 20170428
  Serious: Yes (Hospitalization, Other)
  Sender: FDA-Public Use
  Company Number: BR-ALEXION PHARMACEUTICALS INC-A201603325

PATIENT
  Age: 11 Month
  Sex: Female

DRUGS (4)
  1. SOLIRIS [Suspect]
     Active Substance: ECULIZUMAB
     Dosage: 300 MG, EVERY 21 DAYS
     Route: 042
  2. PENICILLIN                         /00000901/ [Concomitant]
     Active Substance: PENICILLIN G
     Indication: CATHETER SITE INFECTION
     Dosage: UNK
     Route: 065
  3. SOLIRIS [Suspect]
     Active Substance: ECULIZUMAB
     Indication: HAEMOLYTIC URAEMIC SYNDROME
     Dosage: 300 MG, QW
     Route: 042
     Dates: start: 20150829
  4. CEFEPIME [Concomitant]
     Active Substance: CEFEPIME HYDROCHLORIDE
     Indication: CATHETER SITE INFECTION
     Dosage: UNK
     Route: 065

REACTIONS (2)
  - Catheter site infection [Recovered/Resolved]
  - Device related infection [Unknown]

NARRATIVE: CASE EVENT DATE: 201604
